FAERS Safety Report 16924303 (Version 1)
Quarter: 2019Q4

REPORT INFORMATION
  Report Type: Spontaneous
  Country: DE (occurrence: DE)
  Receive Date: 20191016
  Receipt Date: 20191016
  Transmission Date: 20200122
  Serious: Yes (Hospitalization, Other)
  Sender: FDA-Public Use
  Company Number: DE-PFIZER INC-2019442242

PATIENT
  Age: 1 Day
  Sex: Male
  Weight: 3 kg

DRUGS (2)
  1. FOLIO [FOLIC ACID;POTASSIUM IODIDE] [Concomitant]
     Dosage: 0.4 MG, 1X/DAY
     Route: 064
     Dates: start: 20180621, end: 20190330
  2. SERTRALINE HCL [Suspect]
     Active Substance: SERTRALINE HYDROCHLORIDE
     Dosage: 50 MG, 1X/DAY; 50 [MG / D (TO 25)]
     Route: 064
     Dates: start: 20180621, end: 20190330

REACTIONS (4)
  - Oxygen saturation decreased [Recovered/Resolved]
  - Maternal exposure timing unspecified [Unknown]
  - Atrial septal defect [Unknown]
  - Infantile apnoea [Recovered/Resolved]

NARRATIVE: CASE EVENT DATE: 2019
